FAERS Safety Report 22006420 (Version 3)
Quarter: 2023Q1

REPORT INFORMATION
  Report Type: Spontaneous
  Country: IT (occurrence: IT)
  Receive Date: 20230217
  Receipt Date: 20230307
  Transmission Date: 20230417
  Serious: Yes (Death, Hospitalization, Other)
  Sender: FDA-Public Use
  Company Number: IT-Zentiva-2023-ZT-002849

PATIENT
  Age: 82 Year
  Sex: Female

DRUGS (5)
  1. METFORMIN HYDROCHLORIDE [Suspect]
     Active Substance: METFORMIN HYDROCHLORIDE
     Indication: Type 2 diabetes mellitus
     Dosage: 2000 MG, QD
     Route: 065
     Dates: end: 20210123
  2. BARNIDIPINE [Concomitant]
     Active Substance: BARNIDIPINE
     Indication: Hypertensive heart disease
     Dosage: 10 MG, QD
     Route: 048
  3. TRAZODONE [Concomitant]
     Active Substance: TRAZODONE HYDROCHLORIDE
     Indication: Product used for unknown indication
     Dosage: 15-21 DROPS
     Route: 048
  4. WARFARIN [Concomitant]
     Active Substance: WARFARIN
     Indication: Thrombophlebitis
     Dosage: 1.25 MG, BID
     Route: 048
  5. ENALAPRIL [Concomitant]
     Active Substance: ENALAPRIL
     Indication: Hypertensive heart disease
     Dosage: 20 MG, QD
     Route: 048

REACTIONS (11)
  - Metabolic acidosis [Fatal]
  - Urosepsis [Fatal]
  - Renal failure [Recovered/Resolved]
  - Anuria [Recovered/Resolved]
  - Lactic acidosis [Recovered/Resolved]
  - Sensory disturbance [Recovered/Resolved]
  - Abdominal pain [Recovered/Resolved]
  - Loss of consciousness [Recovered/Resolved]
  - Respiratory acidosis [Recovered/Resolved]
  - Diarrhoea [Recovered/Resolved]
  - Dehydration [Recovered/Resolved]

NARRATIVE: CASE EVENT DATE: 20210123
